FAERS Safety Report 17814591 (Version 2)
Quarter: 2020Q2

REPORT INFORMATION
  Report Type: Spontaneous
  Country: PT (occurrence: PT)
  Receive Date: 20200522
  Receipt Date: 20200604
  Transmission Date: 20200714
  Serious: Yes (Other)
  Sender: FDA-Public Use
  Company Number: PT-TEVA-2020-PT-1237613

PATIENT
  Age: 50 Year
  Sex: Female

DRUGS (1)
  1. ALPRAZOLAM. [Suspect]
     Active Substance: ALPRAZOLAM
     Dosage: 1 MILLIGRAM DAILY;
     Route: 048

REACTIONS (3)
  - Psychomotor retardation [Recovered/Resolved]
  - Anhedonia [Recovered/Resolved]
  - Apathy [Recovered/Resolved]
